FAERS Safety Report 6902528-9 (Version None)
Quarter: 2010Q3

REPORT INFORMATION
  Report Type: 
  Country: None (occurrence: None)
  Receive Date: 20100730
  Receipt Date: 20100716
  Transmission Date: 20110219
  Serious: Yes (Other)
  Sender: FDA-Public Use
  Company Number: 1000013475

PATIENT
  Age: 57 Year
  Sex: Female
  Weight: 62 kg

DRUGS (4)
  1. ESCITALOPRAM [Suspect]
     Indication: ANXIETY DISORDER
     Dosage: SEE IMAGE
     Route: 048
     Dates: start: 20090101, end: 20090101
  2. ESCITALOPRAM [Suspect]
     Indication: ANXIETY DISORDER
     Dosage: SEE IMAGE
     Route: 048
     Dates: start: 20090101, end: 20090101
  3. ESCITALOPRAM [Suspect]
     Indication: ANXIETY DISORDER
     Dosage: SEE IMAGE
     Route: 048
     Dates: start: 20090201, end: 20090101
  4. ESCITALOPRAM [Suspect]
     Indication: ANXIETY DISORDER
     Dosage: SEE IMAGE
     Route: 048
     Dates: start: 20090101

REACTIONS (6)
  - AGITATION [None]
  - DECREASED APPETITE [None]
  - FEELING ABNORMAL [None]
  - FEELING OF DESPAIR [None]
  - INSOMNIA [None]
  - SUICIDAL IDEATION [None]
